FAERS Safety Report 8637873 (Version 2)
Quarter: 2014Q1

REPORT INFORMATION
  Report Type: Spontaneous
  Country: US (occurrence: None)
  Receive Date: 20120323
  Receipt Date: 20130305
  Transmission Date: 20141002
  Serious: Yes (Other)
  Sender: FDA-Public Use
  Company Number: 163-21880-11093270

PATIENT
  Age: 89 Year
  Sex: Female

DRUGS (20)
  1. REVLIMID [Suspect]
     Indication: PLASMA CELL MYELOMA
     Dosage: 5 MG, EVERY OTHER DAY FOR 3 WEEKS 1 WEEK OFF, PO
     Route: 048
     Dates: start: 20110921
  2. ATENOLOL (ATENOLOL) [Concomitant]
  3. COUMADIN [Concomitant]
  4. HYDRALAZINE HYDROCHLORIDE [Concomitant]
  5. AMLODIPINE BESYLATE (AMLODIPINE BESILATE) [Concomitant]
  6. CLONIDINE HCL (CLONIDINE HYDROCHLORIDE) INJECTION [Concomitant]
  7. SYNTHROID [Concomitant]
  8. ISOSORBIDE MONONITRATE CR (ISOSORBIDE MONONITRATE) [Concomitant]
  9. FLOVENT [Concomitant]
  10. FLONASE [Concomitant]
  11. AYR SALINE NASAL (SODIUM CHLORIDE) [Concomitant]
  12. DIPROLENE AF (BETAMETHASONE DIPROPIONATE) [Concomitant]
  13. ZANTAC [Concomitant]
  14. TYLENOL (PARACETAMOL) [Concomitant]
  15. CENTRUM SILVER [Concomitant]
  16. CALCIUM CARBONATE [Concomitant]
  17. PROCHLORPERAZINE MALEATE (PROCHLORPERAZINE MALEATE) [Concomitant]
  18. ZOFRAN [Concomitant]
  19. DEXAMETHASONE (DEXAMETHASONE) [Concomitant]
  20. CYCLOBENZAPRINE HCL (CYCLOBENZAPRINE HYDROCHLORIDE)) [Concomitant]

REACTIONS (4)
  - Deep vein thrombosis [None]
  - Oedema peripheral [None]
  - Pruritus [None]
  - Dehydration [None]
